FAERS Safety Report 21293487 (Version 3)
Quarter: 2022Q4

REPORT INFORMATION
  Report Type: Report from Study
  Country: US (occurrence: US)
  Receive Date: 20220905
  Receipt Date: 20221018
  Transmission Date: 20230113
  Serious: Yes (Other)
  Sender: FDA-Public Use
  Company Number: US-ASTELLAS-2022US028254

PATIENT
  Age: 89 Year
  Sex: Male

DRUGS (1)
  1. ENZALUTAMIDE [Suspect]
     Active Substance: ENZALUTAMIDE
     Indication: Prostate cancer
     Route: 048
     Dates: start: 20210430, end: 20220818

REACTIONS (6)
  - Diabetes mellitus [Unknown]
  - Ageusia [Unknown]
  - Decreased appetite [Not Recovered/Not Resolved]
  - Dysgeusia [Unknown]
  - Asthenia [Unknown]
  - Hypertension [Unknown]

NARRATIVE: CASE EVENT DATE: 20220803
